FAERS Safety Report 8401687 (Version 4)
Quarter: 2013Q2

REPORT INFORMATION
  Report Type: Spontaneous
  Country: US (occurrence: US)
  Receive Date: 20120213
  Receipt Date: 20130618
  Transmission Date: 20140414
  Serious: Yes (Hospitalization, Other)
  Sender: FDA-Public Use
  Company Number: US-BIOGENIDEC-2012BI004022

PATIENT
  Age: 34 Year
  Sex: Female

DRUGS (12)
  1. TYSABRI [Suspect]
     Indication: MULTIPLE SCLEROSIS
     Route: 042
     Dates: start: 20100701, end: 20120212
  2. HYDROCHLOROTHIAZIDE [Concomitant]
     Indication: HYPERTENSION
     Dosage: DOSE UNIT:25 UNKNOWN
  3. CARVEDILOL [Concomitant]
     Indication: HEADACHE
     Dosage: DOSE UNIT:25 UNKNOWN
  4. EFFEXOR XL [Concomitant]
     Dosage: DOSE UNIT:125 UNKNOWN
  5. NUVIGIL [Concomitant]
     Indication: FATIGUE
  6. XANAX [Concomitant]
     Indication: ANXIETY
  7. IBUPROFEN [Concomitant]
  8. PERCOCET [Concomitant]
  9. ASPIRIN [Concomitant]
     Indication: PROPHYLAXIS
  10. AMBIEN [Concomitant]
     Indication: SLEEP DISORDER
  11. MULTIVITAMIN [Concomitant]
  12. ACYCLOVIR [Concomitant]
     Indication: HERPES VIRUS INFECTION

REACTIONS (1)
  - Meningitis herpes [Recovered/Resolved]
